FAERS Safety Report 8053523-0 (Version None)
Quarter: 2012Q1

REPORT INFORMATION
  Report Type: 
  Country: None (occurrence: None)
  Receive Date: 20120118
  Receipt Date: 20120104
  Transmission Date: 20120608
  Serious: No
  Sender: FDA-Public Use
  Company Number: GB-VALEANT-2011VX003469

PATIENT
  Sex: Male

DRUGS (9)
  1. MESTINON [Suspect]
     Route: 048
  2. FINASTERIDE [Concomitant]
     Route: 065
  3. FUROSEMIDE [Concomitant]
     Route: 065
  4. LOPERAMIDE [Concomitant]
     Route: 065
  5. PIPERACILLIN AND TAZOBACTAM [Concomitant]
     Route: 065
  6. MIRTAZAPINE [Concomitant]
     Route: 065
  7. ACETAMINOPHEN [Concomitant]
     Route: 065
  8. OMEPRAZOLE [Concomitant]
     Route: 065
  9. DEXAMETHASONE TAB [Concomitant]
     Route: 065

REACTIONS (3)
  - DYSPHAGIA [None]
  - INFECTION [None]
  - MALAISE [None]
